FAERS Safety Report 18843163 (Version 1)
Quarter: 2021Q1

REPORT INFORMATION
  Report Type: Report from Study
  Country: US (occurrence: US)
  Receive Date: 20210203
  Receipt Date: 20210203
  Transmission Date: 20210419
  Serious: No
  Sender: FDA-Public Use
  Company Number: US-EXELIXIS-CABO-20026540

PATIENT
  Sex: Male

DRUGS (2)
  1. ONDANSETRON [Concomitant]
     Active Substance: ONDANSETRON
     Dosage: UNK
  2. CABOMETYX [Suspect]
     Active Substance: CABOZANTINIB S-MALATE
     Indication: RENAL CANCER
     Dosage: 60 MG, QD (AM WITHOUT FOOD)
     Route: 048
     Dates: start: 20191223, end: 20200121

REACTIONS (8)
  - Weight decreased [Unknown]
  - Thyroid hormones increased [Unknown]
  - Liver function test increased [Unknown]
  - Decreased appetite [Unknown]
  - Hypertension [Recovered/Resolved]
  - Haemorrhoids [Not Recovered/Not Resolved]
  - Constipation [Not Recovered/Not Resolved]
  - Fatigue [Unknown]
